FAERS Safety Report 17581777 (Version 1)
Quarter: 2020Q1

REPORT INFORMATION
  Report Type: Spontaneous
  Country: US (occurrence: US)
  Receive Date: 20200325
  Receipt Date: 20200325
  Transmission Date: 20200409
  Serious: No
  Sender: FDA-Public Use
  Company Number: US-GILEAD-2020-0455936

PATIENT
  Age: 66 Year
  Sex: Male

DRUGS (5)
  1. BICILLIN [BENZATHINE BENZYLPENICILLIN] [Concomitant]
     Dosage: UNK
     Dates: start: 20200224
  2. RESTASIS [Concomitant]
     Active Substance: CYCLOSPORINE
     Dosage: UNK, BID
     Route: 047
  3. ZIAGEN [Concomitant]
     Active Substance: ABACAVIR SULFATE
  4. DOXYCYCLINE. [Concomitant]
     Active Substance: DOXYCYCLINE
     Dosage: 1 DOSAGE FORM, BID
     Dates: end: 20200223
  5. BIKTARVY [Suspect]
     Active Substance: BICTEGRAVIR SODIUM\EMTRICITABINE\TENOFOVIR ALAFENAMIDE FUMARATE
     Indication: HIV INFECTION
     Dosage: 1 DOSAGE FORM, QD
     Route: 065

REACTIONS (6)
  - Corona virus infection [Unknown]
  - Lower respiratory tract infection [Recovering/Resolving]
  - Rhinorrhoea [Unknown]
  - Throat irritation [Unknown]
  - Syphilis [Unknown]
  - Asthenia [Recovering/Resolving]

NARRATIVE: CASE EVENT DATE: 20200212
